FAERS Safety Report 4822747-5 (Version None)
Quarter: 2005Q4

REPORT INFORMATION
  Report Type: 
  Country: None (occurrence: None)
  Receive Date: 20051104
  Receipt Date: 20051021
  Transmission Date: 20060501
  Serious: Yes (Hospitalization)
  Sender: FDA-Public Use
  Company Number: 05US000704

PATIENT
  Age: 49 Year
  Sex: Female

DRUGS (4)
  1. LITHIUM CARBONATE [Suspect]
     Indication: BIPOLAR I DISORDER
     Dosage: 900 MG, QD
  2. DIVALPROEX SODIUM [Concomitant]
  3. QUETIAPINE FUMARATE [Concomitant]
  4. LAMOTRIGINE [Concomitant]

REACTIONS (2)
  - DEPRESSION [None]
  - ELECTROCONVULSIVE THERAPY [None]
